FAERS Safety Report 18330572 (Version 2)
Quarter: 2020Q4

REPORT INFORMATION
  Report Type: Spontaneous
  Country: BR (occurrence: BR)
  Receive Date: 20200930
  Receipt Date: 20201009
  Transmission Date: 20210113
  Serious: Yes (Death, Life-Threatening, Hospitalization, Other)
  Sender: FDA-Public Use
  Company Number: BR-PFIZER INC-2020376892

PATIENT
  Age: 50 Year
  Sex: Female

DRUGS (4)
  1. AMPHOTERICIN B. [Concomitant]
     Active Substance: AMPHOTERICIN B
     Indication: BRONCHOPULMONARY ASPERGILLOSIS
     Dosage: 5 MG/KG, DAILY (AMPHOTERICIN B LIPID COMPLEX)
     Dates: start: 20161216
  2. METHYLPREDNISOLONE SODIUM SUCCINATE. [Suspect]
     Active Substance: METHYLPREDNISOLONE SODIUM SUCCINATE
     Dosage: UNK
     Route: 042
     Dates: start: 20161220
  3. ITRACONAZOLE. [Concomitant]
     Active Substance: ITRACONAZOLE
     Dosage: 200 MG, 3X/DAY
  4. PREDNISONE. [Suspect]
     Active Substance: PREDNISONE
     Dosage: 0.5 MG/KG, DAILY
     Dates: start: 20161216, end: 20161220

REACTIONS (6)
  - Acute respiratory failure [Fatal]
  - Septic shock [Fatal]
  - Shock [Fatal]
  - Sepsis [Fatal]
  - Acute kidney injury [Fatal]
  - Pulmonary sporotrichosis [Fatal]

NARRATIVE: CASE EVENT DATE: 20161222
